FAERS Safety Report 24857792 (Version 3)
Quarter: 2025Q1

REPORT INFORMATION
  Report Type: Other
  Country: US (occurrence: US)
  Receive Date: 20250117
  Receipt Date: 20250218
  Transmission Date: 20250409
  Serious: No
  Sender: TRAVERE THERAPEUTICS
  Company Number: US-TRAVERE-2024TVT01324

PATIENT
  Age: 63 Year
  Sex: Male

DRUGS (1)
  1. FILSPARI [Suspect]
     Active Substance: SPARSENTAN
     Indication: IgA nephropathy
     Dosage: 200MG OF 2 TABLETS
     Route: 048
     Dates: start: 20241129

REACTIONS (2)
  - Peripheral swelling [None]
  - Fluid retention [Unknown]

NARRATIVE: CASE EVENT DATE: 20241129
